FAERS Safety Report 12311397 (Version 3)
Quarter: 2016Q3

REPORT INFORMATION
  Report Type: Report from Study
  Country: DE (occurrence: DE)
  Receive Date: 20160427
  Receipt Date: 20160826
  Transmission Date: 20161109
  Serious: Yes (Hospitalization, Other)
  Sender: FDA-Public Use
  Company Number: DE-INCYTE CORPORATION-2016IN000383

PATIENT
  Age: 74 Year
  Sex: Male
  Weight: 81 kg

DRUGS (2)
  1. INCB018424 [Suspect]
     Active Substance: RUXOLITINIB
     Indication: PRIMARY MYELOFIBROSIS
     Dosage: 40 MG PER DAY/TWICE
     Route: 048
     Dates: start: 20150204, end: 20150826
  2. INCB018424 [Suspect]
     Active Substance: RUXOLITINIB
     Dosage: 40 MG, QD
     Route: 048
     Dates: start: 20160127

REACTIONS (5)
  - Abscess [Recovered/Resolved]
  - Weight decreased [Not Recovered/Not Resolved]
  - Histiocytosis haematophagic [Recovered/Resolved]
  - Erythrophagocytosis [Not Recovered/Not Resolved]
  - Pruritus [Unknown]

NARRATIVE: CASE EVENT DATE: 20150717
